FAERS Safety Report 11834376 (Version 2)
Quarter: 2016Q3

REPORT INFORMATION
  Report Type: Spontaneous
  Country: US (occurrence: US)
  Receive Date: 20151214
  Receipt Date: 20160722
  Transmission Date: 20161109
  Serious: No
  Sender: FDA-Public Use
  Company Number: US-ELI_LILLY_AND_COMPANY-US201512002162

PATIENT
  Sex: Female

DRUGS (1)
  1. STRATTERA [Suspect]
     Active Substance: ATOMOXETINE HYDROCHLORIDE
     Indication: ATTENTION DEFICIT/HYPERACTIVITY DISORDER
     Dosage: 80 MG, QD
     Dates: start: 20151031

REACTIONS (12)
  - Drug dose omission [Unknown]
  - Influenza like illness [Unknown]
  - Dry mouth [Unknown]
  - Eye pain [Unknown]
  - Dry skin [Not Recovered/Not Resolved]
  - Headache [Unknown]
  - Nausea [Unknown]
  - Visual impairment [Unknown]
  - Corneal abrasion [Unknown]
  - Dry eye [Unknown]
  - Pain [Unknown]
  - Fatigue [Unknown]
